FAERS Safety Report 6339243-9 (Version None)
Quarter: 2009Q3

REPORT INFORMATION
  Report Type: 
  Country: None (occurrence: None)
  Receive Date: 20090903
  Receipt Date: 20090826
  Transmission Date: 20100115
  Serious: Yes (Hospitalization)
  Sender: FDA-Public Use
  Company Number: A0701536A

PATIENT
  Age: 73 Year
  Sex: Female
  Weight: 78.2 kg

DRUGS (3)
  1. AVANDIA [Suspect]
     Dosage: 8MG PER DAY
     Route: 048
     Dates: start: 20010124, end: 20060101
  2. GLUCOPHAGE [Concomitant]
     Dates: start: 20010111, end: 20010315
  3. PRECOSE [Concomitant]
     Dates: start: 20041203, end: 20060214

REACTIONS (4)
  - INJURY [None]
  - MYOCARDIAL INFARCTION [None]
  - PAIN [None]
  - PULMONARY OEDEMA [None]
